FAERS Safety Report 5003945-7 (Version None)
Quarter: 2006Q2

REPORT INFORMATION
  Report Type: 
  Country: None (occurrence: None)
  Receive Date: 20060515
  Receipt Date: 20060515
  Transmission Date: 20061013
  Serious: Yes (Life-Threatening)
  Sender: FDA-Public Use
  Company Number: None

PATIENT
  Age: 86 Year
  Sex: Female
  Weight: 68 kg

DRUGS (12)
  1. HEPARIN SODIUM 25,000 UNITS IN DEXTROSE 5% [Suspect]
     Indication: CARDIAC FAILURE CONGESTIVE
     Dosage: 25,000 UNITS  TITRATE  IV
     Route: 042
     Dates: start: 20060203, end: 20060205
  2. ASPIRIN [Suspect]
     Dosage: 81MG  DAILY  ORAL
     Route: 048
  3. AMIODARONE [Concomitant]
  4. NORVASC [Concomitant]
  5. AMLODIPINE [Concomitant]
  6. . [Concomitant]
  7. LIPITOR [Concomitant]
  8. BUPROPION [Concomitant]
  9. PLAVIX [Concomitant]
  10. NEXAVAR [Concomitant]
  11. LASIX [Concomitant]
  12. AMARYL [Concomitant]

REACTIONS (1)
  - RETROPERITONEAL HAEMATOMA [None]
